FAERS Safety Report 5830966-4 (Version None)
Quarter: 2008Q3

REPORT INFORMATION
  Report Type: 
  Country: None (occurrence: None)
  Receive Date: 20080801
  Receipt Date: 20080304
  Transmission Date: 20090109
  Serious: Yes (Hospitalization)
  Sender: FDA-Public Use
  Company Number: US-BRISTOL-MYERS SQUIBB COMPANY-14102164

PATIENT
  Age: 84 Year
  Sex: Female
  Weight: 68 kg

DRUGS (5)
  1. COUMADIN [Suspect]
     Indication: ATRIAL FIBRILLATION
     Dosage: ACCIDENTIALLY TOOK COUMADIN 15MG IN ONE DAY.
  2. COZAAR [Concomitant]
  3. ZOCOR [Concomitant]
  4. DIAZEPAM [Concomitant]
  5. MULTI-VITAMIN [Concomitant]

REACTIONS (6)
  - ABDOMINAL PAIN UPPER [None]
  - HYPERSENSITIVITY [None]
  - INTERNATIONAL NORMALISED RATIO DECREASED [None]
  - INTERNATIONAL NORMALISED RATIO INCREASED [None]
  - MEDICATION ERROR [None]
  - NAUSEA [None]
